FAERS Safety Report 9465564 (Version 2)
Quarter: 2013Q3

REPORT INFORMATION
  Report Type: Spontaneous
  Country: US (occurrence: US)
  Receive Date: 20130820
  Receipt Date: 20130903
  Transmission Date: 20140515
  Serious: Yes (Hospitalization)
  Sender: FDA-Public Use
  Company Number: US-JNJFOC-20130806257

PATIENT
  Age: 79 Year
  Sex: Male
  Weight: 74.84 kg

DRUGS (8)
  1. XARELTO [Suspect]
     Indication: CEREBROVASCULAR ACCIDENT PROPHYLAXIS
     Route: 048
     Dates: start: 20130718, end: 20130807
  2. XARELTO [Suspect]
     Indication: ATRIAL FIBRILLATION
     Route: 048
     Dates: start: 20130718, end: 20130807
  3. LISINOPRIL [Concomitant]
     Indication: HYPERTENSION
     Dosage: DAILY
     Route: 048
  4. LASIX [Concomitant]
     Indication: JOINT SWELLING
     Dosage: DAILY
     Route: 048
     Dates: start: 2012
  5. POTASSIUM [Concomitant]
     Indication: BLOOD POTASSIUM DECREASED
     Dosage: DAILY
     Route: 048
     Dates: start: 2012
  6. ZOCOR [Concomitant]
     Indication: BLOOD CHOLESTEROL
     Dosage: DAILY
     Route: 048
     Dates: start: 2005
  7. TERAZOSIN [Concomitant]
     Indication: PROSTATOMEGALY
     Dosage: DAILY
     Route: 048
     Dates: start: 2006
  8. FINASTERIDE [Concomitant]
     Indication: PROSTATOMEGALY
     Dosage: DAILY
     Route: 048
     Dates: start: 2009

REACTIONS (2)
  - Haematochezia [Recovered/Resolved]
  - Contusion [Recovering/Resolving]
